FAERS Safety Report 22156142 (Version 2)
Quarter: 2023Q1

REPORT INFORMATION
  Report Type: Spontaneous
  Country: TH (occurrence: TH)
  Receive Date: 20230330
  Receipt Date: 20230331
  Transmission Date: 20230418
  Serious: Yes (Other)
  Sender: FDA-Public Use
  Company Number: TH-002147023-NVSC2023TH048450

PATIENT
  Age: 66 Year
  Sex: Female

DRUGS (7)
  1. RIBOCICLIB [Suspect]
     Active Substance: RIBOCICLIB
     Indication: Lymphadenopathy
     Dosage: 200 MG, QD (3 TABLETS (TOTAL = 600 MG))
     Route: 048
     Dates: start: 20220610
  2. RIBOCICLIB [Suspect]
     Active Substance: RIBOCICLIB
     Indication: Lymphadenopathy mediastinal
     Dosage: 400 MG, QD
     Route: 048
     Dates: start: 20220901, end: 20220922
  3. RIBOCICLIB [Suspect]
     Active Substance: RIBOCICLIB
     Indication: Breast cancer metastatic
     Dosage: 400 MG, QD
     Route: 048
     Dates: start: 20230309
  4. FEMARA [Suspect]
     Active Substance: LETROZOLE
     Indication: Lymphadenopathy
     Dosage: UNK, QD (1 TABLET)
     Route: 065
  5. FEMARA [Suspect]
     Active Substance: LETROZOLE
     Indication: Breast cancer metastatic
     Dosage: UNK, QD (1 TABLET)
     Route: 065
  6. FEMARA [Suspect]
     Active Substance: LETROZOLE
     Indication: Lymphadenopathy mediastinal
  7. CALTAB [Concomitant]
     Indication: Product used for unknown indication
     Dosage: UNK
     Route: 065

REACTIONS (18)
  - Carcinoembryonic antigen increased [Unknown]
  - Neutropenia [Unknown]
  - Autoimmune hepatitis [Recovered/Resolved]
  - Hepatitis [Recovered/Resolved]
  - Pancreatic disorder [Unknown]
  - Weight decreased [Unknown]
  - Antinuclear antibody positive [Unknown]
  - Smooth muscle antibody positive [Unknown]
  - Bundle branch block right [Unknown]
  - White blood cell count decreased [Unknown]
  - Body mass index increased [Unknown]
  - Hepatomegaly [Unknown]
  - Cholelithiasis [Unknown]
  - Renal cyst [Unknown]
  - Lymphadenopathy [Unknown]
  - Carbohydrate antigen 15-3 increased [Unknown]
  - Fatigue [Unknown]
  - Constipation [Unknown]

NARRATIVE: CASE EVENT DATE: 20220623
